FAERS Safety Report 24728423 (Version 1)
Quarter: 2024Q4

REPORT INFORMATION
  Report Type: Spontaneous
  Country: BE (occurrence: BE)
  Receive Date: 20241212
  Receipt Date: 20241212
  Transmission Date: 20250115
  Serious: Yes (Hospitalization)
  Sender: ASTELLAS
  Company Number: BE-PFIZER INC-PV202400159078

PATIENT
  Age: 71 Year
  Sex: Male

DRUGS (1)
  1. ENFORTUMAB VEDOTIN [Suspect]
     Active Substance: ENFORTUMAB VEDOTIN
     Indication: Transitional cell carcinoma
     Dosage: 1.25 MG/KG, DAY 1, 8, 15 IN A 28-DAY CYCLE, 2 CYCLES
     Route: 065
     Dates: start: 202301

REACTIONS (1)
  - Pulmonary toxicity [Recovered/Resolved]
